FAERS Safety Report 20933534 (Version 1)
Quarter: 2022Q2

REPORT INFORMATION
  Report Type: Spontaneous
  Country: CN (occurrence: CN)
  Receive Date: 20220608
  Receipt Date: 20220608
  Transmission Date: 20220721
  Serious: Yes (Hospitalization, Other)
  Sender: FDA-Public Use
  Company Number: CN-TRIS PHARMA, INC.-22CN010276

PATIENT

DRUGS (6)
  1. RISPERIDONE [Interacting]
     Active Substance: RISPERIDONE
     Indication: Antipsychotic therapy
     Dosage: 2 MILLIGRAM, QD
  2. PAROXETINE [Interacting]
     Active Substance: PAROXETINE
     Indication: Antipsychotic therapy
     Dosage: 20 MILLIGRAM, QD
  3. LORAZEPAM [Interacting]
     Active Substance: LORAZEPAM
     Indication: Antipsychotic therapy
     Dosage: 2 MILLIGRAM, QD
  4. SUFENTANIL [Interacting]
     Active Substance: SUFENTANIL
     Indication: Induction of anaesthesia
     Dosage: 8 MICROGRAM
  5. ISOPROTERENOL [ISOPRENALINE HYDROCHLORIDE] [Concomitant]
     Indication: Induction of anaesthesia
     Dosage: 150 MILLIGRAM
  6. SUCCINYLCHOLINE [Concomitant]
     Active Substance: SUCCINYLCHOLINE
     Indication: Induction of anaesthesia
     Dosage: 120 MILLIGRAM

REACTIONS (7)
  - Hyperthermia malignant [Recovered/Resolved]
  - Potentiating drug interaction [Unknown]
  - Neuroleptic malignant syndrome [Recovered/Resolved]
  - Acute kidney injury [Recovered/Resolved]
  - Rhabdomyolysis [Recovered/Resolved]
  - Lipase increased [Recovered/Resolved]
  - Amylase increased [Recovered/Resolved]
